FAERS Safety Report 4642564-9 (Version None)
Quarter: 2005Q2

REPORT INFORMATION
  Report Type: 
  Country: None (occurrence: None)
  Receive Date: 20050422
  Receipt Date: 20050411
  Transmission Date: 20051028
  Serious: Yes (Hospitalization)
  Sender: FDA-Public Use
  Company Number: US-BRISTOL-MYERS SQUIBB COMPANY-12932711

PATIENT
  Age: 88 Year
  Sex: Male
  Weight: 165 kg

DRUGS (12)
  1. COUMADIN [Suspect]
     Indication: CORONARY ARTERY SURGERY
     Route: 048
     Dates: start: 20050101
  2. AMBIEN [Concomitant]
     Dosage: AS NEEDED DAILY
  3. ASPIRIN [Concomitant]
  4. BENADRYL [Concomitant]
  5. DIABETA [Concomitant]
  6. EXELON [Concomitant]
  7. LANOXIN [Concomitant]
  8. NASONEX [Concomitant]
     Route: 045
  9. PRILOSEC [Concomitant]
  10. TENORMIN [Concomitant]
     Dosage: 25 MG, 1/2 TABLET TWICE A DAY
     Route: 048
  11. THYROID TAB [Concomitant]
  12. TUSSIN DM [Concomitant]

REACTIONS (1)
  - BRONCHITIS ACUTE [None]
